FAERS Safety Report 15746815 (Version 2)
Quarter: 2019Q1

REPORT INFORMATION
  Report Type: Spontaneous
  Country: IT (occurrence: IT)
  Receive Date: 20181220
  Receipt Date: 20190129
  Transmission Date: 20190417
  Serious: Yes (Hospitalization)
  Sender: FDA-Public Use
  Company Number: IT-PFIZER INC-2018519612

PATIENT
  Age: 36 Year
  Sex: Female

DRUGS (3)
  1. ENTACT [Concomitant]
     Active Substance: ESCITALOPRAM OXALATE
     Dosage: UNK
  2. XANAX [Suspect]
     Active Substance: ALPRAZOLAM
     Dosage: 1 DF, SINGLE
     Route: 048
     Dates: start: 20181016, end: 20181016
  3. MIRTAZAPINE. [Suspect]
     Active Substance: MIRTAZAPINE
     Dosage: 10 DF, SINGLE
     Route: 048
     Dates: start: 20181016, end: 20181016

REACTIONS (3)
  - Psychomotor hyperactivity [Unknown]
  - Intentional self-injury [Unknown]
  - Drug abuse [Unknown]

NARRATIVE: CASE EVENT DATE: 20181016
